FAERS Safety Report 4661647-0 (Version None)
Quarter: 2005Q2

REPORT INFORMATION
  Report Type: 
  Country: None (occurrence: None)
  Receive Date: 20050511
  Receipt Date: 20050511
  Transmission Date: 20051028
  Serious: Yes (Hospitalization)
  Sender: FDA-Public Use
  Company Number: None

PATIENT
  Age: 84 Year
  Sex: Male

DRUGS (11)
  1. METOPROLOL [Suspect]
     Indication: HYPERTENSION
     Dosage: 25 MG BID
     Dates: start: 20031106
  2. FELODIPINE [Suspect]
     Indication: HYPERTENSION
     Dosage: 10 MG QD
     Dates: start: 20040217
  3. LISINOPRIL [Suspect]
     Indication: HYPERTENSION
     Dosage: 40 MG QD
     Dates: start: 20030306
  4. DSS [Concomitant]
  5. ASPIRIN [Concomitant]
  6. FESO4 [Concomitant]
  7. OMEPRAZOLE [Concomitant]
  8. ASATHIOPRINE [Concomitant]
  9. TRAMADOL [Concomitant]
  10. CELECOXIB [Concomitant]
  11. PREDNISONE TAB [Concomitant]

REACTIONS (2)
  - BRADYCARDIA [None]
  - HYPOTENSION [None]
